FAERS Safety Report 5810406-1 (Version None)
Quarter: 2008Q3

REPORT INFORMATION
  Report Type: 
  Country: None (occurrence: None)
  Receive Date: 20080715
  Receipt Date: 20080703
  Transmission Date: 20090109
  Serious: Yes (Death, Hospitalization)
  Sender: FDA-Public Use
  Company Number: BR-PFIZER INC-2006091236

PATIENT
  Sex: Male
  Weight: 92 kg

DRUGS (9)
  1. SU-011,248 [Suspect]
     Indication: METASTATIC RENAL CELL CARCINOMA
     Route: 048
     Dates: start: 20060516, end: 20060724
  2. AMLODIPINE/ATENOLOL [Concomitant]
     Route: 048
  3. ALLOPURINOL [Concomitant]
     Route: 048
     Dates: start: 20051201
  4. ACETYLSALICYLIC ACID SRT [Concomitant]
     Route: 048
     Dates: start: 20051201
  5. CLOPIDOGREL [Concomitant]
     Route: 048
     Dates: start: 20051201
  6. ENALAPRIL MALEATE [Concomitant]
     Route: 048
     Dates: start: 20051201
  7. ISOSORBIDE MONONITRATE [Concomitant]
     Route: 048
     Dates: start: 20051201
  8. SIMVASTATIN [Concomitant]
     Route: 048
     Dates: start: 20051201
  9. OMEPRAZOLE [Concomitant]
     Route: 048
     Dates: start: 20060501

REACTIONS (6)
  - ANAL HAEMORRHAGE [None]
  - CONFUSIONAL STATE [None]
  - HEPATIC FAILURE [None]
  - RENAL FAILURE [None]
  - SEPSIS [None]
  - THROMBOCYTOPENIA [None]
